FAERS Safety Report 4608609-7 (Version None)
Quarter: 2005Q1

REPORT INFORMATION
  Report Type: 
  Country: None (occurrence: None)
  Receive Date: 20050311
  Receipt Date: 20050222
  Transmission Date: 20050727
  Serious: Yes (Other)
  Sender: FDA-Public Use
  Company Number: B0305756A

PATIENT
  Age: 40 Year
  Sex: Female

DRUGS (2)
  1. IMITREX [Suspect]
     Indication: MIGRAINE
     Dosage: PER DAY / ORAL
     Route: 048
  2. CALCIUM CHANNEL BLOCKER [Concomitant]

REACTIONS (3)
  - DRUG WITHDRAWAL HEADACHE [None]
  - MEDICATION ERROR [None]
  - TREATMENT NONCOMPLIANCE [None]
